FAERS Safety Report 8567407-2 (Version None)
Quarter: 2012Q3

REPORT INFORMATION
  Report Type: 
  Country: None (occurrence: None)
  Receive Date: 20120803
  Receipt Date: 20120727
  Transmission Date: 20120928
  Serious: Yes (Other)
  Sender: FDA-Public Use
  Company Number: PHHY2012NZ064606

PATIENT
  Sex: Male
  Weight: 75 kg

DRUGS (10)
  1. CLOZARIL [Suspect]
     Indication: AFFECTIVE DISORDER
     Route: 048
     Dates: start: 20021022
  2. CLOZARIL [Suspect]
     Dosage: 287.5 MG
     Route: 048
     Dates: start: 20110301
  3. CLOZARIL [Suspect]
     Dosage: 162.5 MG
     Dates: start: 20120301
  4. AMISULPRIDE [Concomitant]
     Dosage: 300 MG, UNK
     Dates: start: 20120403
  5. LAMOTRIGINE [Concomitant]
     Dosage: 300 MG, UNK
     Route: 048
     Dates: start: 20120101
  6. LITHIUM CARBONATE [Concomitant]
     Indication: AFFECTIVE DISORDER
     Route: 048
     Dates: start: 20101001
  7. AMISULPRIDE [Concomitant]
     Route: 048
     Dates: start: 20110401
  8. LITHIUM CARBONATE [Concomitant]
     Dosage: 750 MG, UNK
     Route: 048
     Dates: start: 20120101
  9. LEVOTHYROXINE SODIUM [Concomitant]
     Indication: HYPOTHYROIDISM
     Route: 048
  10. LAMOTRIGINE [Concomitant]
     Indication: AFFECTIVE DISORDER
     Route: 048
     Dates: start: 20090101

REACTIONS (9)
  - PLATELET COUNT DECREASED [None]
  - RENAL IMPAIRMENT [None]
  - BLOOD CREATININE INCREASED [None]
  - DYSLIPIDAEMIA [None]
  - RENAL FAILURE CHRONIC [None]
  - GLOMERULAR FILTRATION RATE DECREASED [None]
  - MEAN PLATELET VOLUME INCREASED [None]
  - EOSINOPHIL COUNT DECREASED [None]
  - GLUCOSE TOLERANCE IMPAIRED [None]
